FAERS Safety Report 6166119-2 (Version None)
Quarter: 2009Q2

REPORT INFORMATION
  Report Type: 
  Country: None (occurrence: None)
  Receive Date: 20090422
  Receipt Date: 20090422
  Transmission Date: 20091009
  Serious: Yes (Other)
  Sender: FDA-Public Use
  Company Number: None

PATIENT
  Age: 19 Year
  Sex: Female

DRUGS (2)
  1. TERBUTALINE SULFATE [Suspect]
     Dosage: ;;1,1 TOTAL
     Dates: start: 20081113, end: 20081113
  2. NALBUPHINE [Suspect]
     Dosage: ;;1;1 TOTAL
     Dates: start: 20081113, end: 20081113

REACTIONS (1)
  - SYNCOPE [None]
